FAERS Safety Report 9548147 (Version 2)
Quarter: 2013Q3

REPORT INFORMATION
  Report Type: Report from Study
  Country: CN (occurrence: CN)
  Receive Date: 20130924
  Receipt Date: 20130924
  Transmission Date: 20140515
  Serious: Yes (Hospitalization)
  Sender: FDA-Public Use
  Company Number: PHHY2012CN045643

PATIENT
  Age: 30 Year
  Sex: Male
  Weight: 62 kg

DRUGS (3)
  1. MYCOPHENOLIC ACID [Suspect]
     Indication: PROPHYLAXIS AGAINST TRANSPLANT REJECTION
     Dosage: 1080 MG, QD
     Route: 048
     Dates: start: 20120426
  2. MYCOPHENOLIC ACID [Suspect]
     Dosage: 1000 MG, UNK
     Dates: start: 20120427
  3. TACROLIMUS [Concomitant]
     Indication: PROPHYLAXIS AGAINST TRANSPLANT REJECTION
     Dosage: 4 MG, BID

REACTIONS (7)
  - Gastrointestinal haemorrhage [Unknown]
  - Melaena [Recovered/Resolved]
  - Pneumonia [Unknown]
  - Lung infection [Recovering/Resolving]
  - Cystitis glandularis [Recovered/Resolved]
  - Pyrexia [Recovered/Resolved]
  - Urethritis [Recovered/Resolved]
